FAERS Safety Report 24307299 (Version 2)
Quarter: 2024Q4

REPORT INFORMATION
  Report Type: Spontaneous
  Country: GB (occurrence: GB)
  Receive Date: 20240911
  Receipt Date: 20241115
  Transmission Date: 20250115
  Serious: Yes (Life-Threatening, Hospitalization, Other)
  Sender: UCB
  Company Number: GB-UCBSA-2024044755

PATIENT
  Age: 0 Year
  Sex: Male
  Weight: 6.62 kg

DRUGS (1)
  1. CIMZIA [Suspect]
     Active Substance: CERTOLIZUMAB PEGOL
     Indication: Rheumatoid arthritis
     Dosage: UNK
     Route: 063
     Dates: start: 20220815, end: 20221230

REACTIONS (8)
  - Pneumonia [Recovered/Resolved]
  - Viral infection [Recovered/Resolved]
  - Pyrexia [Unknown]
  - Failure to thrive [Unknown]
  - Weight decreased [Unknown]
  - Exposure via breast milk [Unknown]
  - Maternal exposure during pregnancy [Unknown]
  - Maternal exposure before pregnancy [Unknown]

NARRATIVE: CASE EVENT DATE: 20220801
